FAERS Safety Report 4599675-6 (Version None)
Quarter: 2005Q1

REPORT INFORMATION
  Report Type: 
  Country: None (occurrence: None)
  Receive Date: 20050303
  Receipt Date: 20050218
  Transmission Date: 20050727
  Serious: Yes (Death, Hospitalization)
  Sender: FDA-Public Use
  Company Number: US-2005-000749

PATIENT
  Age: 50 Year
  Sex: Male
  Weight: 125.6 kg

DRUGS (5)
  1. GM-CSF (SARGRAMOSTIM) INJECTION [Suspect]
     Indication: MALIGNANT MELANOMA
     Dosage: 250 UG/M2/D, SUBCUTANEOUS
     Route: 058
     Dates: start: 20020123, end: 20050101
  2. PROPRANOLOL [Concomitant]
  3. MOTRIN [Concomitant]
  4. NEURONTIN [Concomitant]
  5. DIFLUCAN [Concomitant]

REACTIONS (10)
  - ACUTE MYELOID LEUKAEMIA [None]
  - FATIGUE [None]
  - HAEMOGLOBIN DECREASED [None]
  - LEUKOPENIA [None]
  - MONOCYTE PERCENTAGE INCREASED [None]
  - NEUTROPHIL PERCENTAGE DECREASED [None]
  - POST PROCEDURAL COMPLICATION [None]
  - PULMONARY COCCIDIOIDES [None]
  - RENAL FAILURE [None]
  - THROMBOCYTOPENIA [None]
